FAERS Safety Report 10577593 (Version 1)
Quarter: 2014Q4

REPORT INFORMATION
  Report Type: Report from Study
  Country: US (occurrence: JP)
  Receive Date: 20141111
  Receipt Date: 20141111
  Transmission Date: 20150529
  Serious: Yes (Other)
  Sender: FDA-Public Use
  Company Number: JP-CELGENE-JPN-2014110827

PATIENT
  Age: 72 Year
  Sex: Male

DRUGS (4)
  1. AZACITIDINE. [Suspect]
     Active Substance: AZACITIDINE
     Route: 050
     Dates: start: 20131216, end: 20131220
  2. AZACITIDINE. [Suspect]
     Active Substance: AZACITIDINE
     Indication: PRODUCT USED FOR UNKNOWN INDICATION
     Route: 050
     Dates: start: 20131018, end: 20131024
  3. AZACITIDINE. [Suspect]
     Active Substance: AZACITIDINE
     Route: 050
     Dates: end: 20140718
  4. AZACITIDINE. [Suspect]
     Active Substance: AZACITIDINE
     Route: 050
     Dates: start: 20131114, end: 20131122

REACTIONS (1)
  - Sudden hearing loss [Not Recovered/Not Resolved]

NARRATIVE: CASE EVENT DATE: 20131208
